FAERS Safety Report 10016103 (Version 1)
Quarter: 2014Q1

REPORT INFORMATION
  Report Type: Spontaneous
  Country: US (occurrence: US)
  Receive Date: 20140317
  Receipt Date: 20140317
  Transmission Date: 20141002
  Serious: Yes (Other)
  Sender: FDA-Public Use
  Company Number: US-FRI-1000064602

PATIENT
  Age: 79 Year
  Sex: Female

DRUGS (8)
  1. LINZESS [Suspect]
     Dosage: 290MCG
     Route: 048
     Dates: start: 20140310, end: 20140310
  2. LANTUS [Concomitant]
  3. NOVOLOG [Concomitant]
  4. SIMVASTATIN [Concomitant]
     Indication: BLOOD CHOLESTEROL INCREASED
  5. VALSARTAN [Concomitant]
     Indication: HYPERTENSION
  6. TRAMADOL [Concomitant]
     Indication: PAIN
  7. OMEPRAZOLE [Concomitant]
  8. MELOXICAM [Concomitant]
     Indication: ARTHRITIS
     Dosage: 15MG WEEKLY

REACTIONS (2)
  - Blood pressure increased [Recovered/Resolved]
  - Palpitations [Recovered/Resolved]
